FAERS Safety Report 9396715 (Version 3)
Quarter: 2013Q4

REPORT INFORMATION
  Report Type: Spontaneous
  Country: AU (occurrence: AU)
  Receive Date: 20130712
  Receipt Date: 20131120
  Transmission Date: 20140711
  Serious: Yes (Other)
  Sender: FDA-Public Use
  Company Number: AU-ROCHE-1247580

PATIENT
  Age: 53 Year
  Sex: Female

DRUGS (2)
  1. MYCOPHENOLATE MOFETIL [Suspect]
     Indication: PYODERMA GANGRENOSUM
     Route: 065
  2. MYCOPHENOLATE MOFETIL [Suspect]
     Indication: OFF LABEL USE

REACTIONS (1)
  - Haemolytic anaemia [Recovered/Resolved]
